FAERS Safety Report 6395165-9 (Version None)
Quarter: 2009Q4

REPORT INFORMATION
  Report Type: 
  Country: None (occurrence: None)
  Receive Date: 20091009
  Receipt Date: 20090929
  Transmission Date: 20100525
  Serious: Yes (Other)
  Sender: FDA-Public Use
  Company Number: PHHY2009CA18819

PATIENT
  Sex: Male

DRUGS (1)
  1. SANDOSTATIN LAR [Suspect]
     Indication: HEPATIC NEOPLASM MALIGNANT
     Dosage: 30 MG, EVERY 4 WEEKS
     Route: 030
     Dates: start: 20090409

REACTIONS (10)
  - CHEST DISCOMFORT [None]
  - DECREASED APPETITE [None]
  - DRUG INEFFECTIVE [None]
  - FATIGUE [None]
  - INJECTION SITE PAIN [None]
  - LIVER DISORDER [None]
  - LUNG DISORDER [None]
  - MALAISE [None]
  - PYREXIA [None]
  - THERAPEUTIC RESPONSE DECREASED [None]
